FAERS Safety Report 24362627 (Version 1)
Quarter: 2024Q3

REPORT INFORMATION
  Report Type: Spontaneous
  Country: AU (occurrence: AU)
  Receive Date: 20240925
  Receipt Date: 20240925
  Transmission Date: 20241017
  Serious: Yes (Death, Other)
  Sender: PFIZER
  Company Number: AU-PFIZER INC-202400262314

PATIENT
  Age: 71 Year
  Sex: Male

DRUGS (2)
  1. TAFAMIDIS [Suspect]
     Active Substance: TAFAMIDIS
     Dosage: 61 MG, 1X/DAY
  2. PATISIRAN [Concomitant]
     Active Substance: PATISIRAN

REACTIONS (4)
  - Death [Fatal]
  - Delirium [Unknown]
  - Agitation [Unknown]
  - Fall [Unknown]
